FAERS Safety Report 15041355 (Version 3)
Quarter: 2018Q2

REPORT INFORMATION
  Report Type: Spontaneous
  Country: ES (occurrence: ES)
  Receive Date: 20180621
  Receipt Date: 20180628
  Transmission Date: 20180711
  Serious: Yes (Other)
  Sender: FDA-Public Use
  Company Number: ES-009507513-1805ESP014308

PATIENT
  Age: 34 Year
  Sex: Female
  Weight: 61 kg

DRUGS (2)
  1. METHOTREXATE. [Concomitant]
     Active Substance: METHOTREXATE
     Indication: DERMATITIS CONTACT
  2. IMPLANON [Suspect]
     Active Substance: ETONOGESTREL
     Indication: CONTRACEPTION
     Dosage: 1 DF, UNK
     Route: 059
     Dates: start: 20180523

REACTIONS (5)
  - Limb discomfort [Unknown]
  - Wrong technique in product usage process [Unknown]
  - Device deployment issue [Not Recovered/Not Resolved]
  - Localised infection [Recovering/Resolving]
  - Implant site discharge [Unknown]

NARRATIVE: CASE EVENT DATE: 2018
